FAERS Safety Report 6754916-1 (Version None)
Quarter: 2010Q2

REPORT INFORMATION
  Report Type: 
  Country: None (occurrence: None)
  Receive Date: 20100524
  Receipt Date: 20100312
  Transmission Date: 20101027
  Serious: No
  Sender: FDA-Public Use
  Company Number: 008658

PATIENT
  Sex: Female

DRUGS (1)
  1. CIMZIA [Suspect]
     Dosage: 200 MG X/2 WEEKS SUBCUTANEOUS
     Route: 058
     Dates: start: 20090901

REACTIONS (1)
  - WHEEZING [None]
